FAERS Safety Report 9822549 (Version 1)
Quarter: 2014Q1

REPORT INFORMATION
  Report Type: Spontaneous
  Country: SE (occurrence: SE)
  Receive Date: 20140116
  Receipt Date: 20140116
  Transmission Date: 20141002
  Serious: Yes (Hospitalization, Other)
  Sender: FDA-Public Use
  Company Number: SE-ASTRAZENECA-2014SE03047

PATIENT
  Sex: Female

DRUGS (3)
  1. ATACAND [Suspect]
     Dosage: LOWER DOSE
     Route: 048
  2. ATACAND [Suspect]
     Route: 048
  3. IMDUR [Suspect]
     Route: 048

REACTIONS (3)
  - Gastrointestinal cancer metastatic [Unknown]
  - Drug ineffective [Unknown]
  - Off label use [Unknown]
